FAERS Safety Report 23059407 (Version 2)
Quarter: 2024Q3

REPORT INFORMATION
  Report Type: Spontaneous
  Country: PT (occurrence: PT)
  Receive Date: 20231012
  Receipt Date: 20240827
  Transmission Date: 20241016
  Serious: No
  Sender: MYLAN
  Company Number: PT-Accord-381677

PATIENT
  Age: 38 Year
  Sex: Male
  Weight: 98 kg

DRUGS (38)
  1. DEXMEDETOMIDINE [Suspect]
     Active Substance: DEXMEDETOMIDINE
     Indication: Anaesthesia
     Dosage: 0.1-0.8 MCG/KG/H
     Route: 065
  2. PROPOFOL [Concomitant]
     Active Substance: PROPOFOL
     Indication: Anaesthesia
     Dosage: 1.5-4 NG/ML
     Route: 065
  3. KETAMINE [Concomitant]
     Active Substance: KETAMINE
     Indication: General anaesthesia
     Dosage: 35 MILLIGRAM (BOLUS DOSE 8AM)
     Route: 065
  4. KETAMINE [Concomitant]
     Active Substance: KETAMINE
     Dosage: 5 MG/ML (INFUSION: 5MG/ML; MAINTENANCE DOSE)
     Route: 065
  5. KETAMINE [Concomitant]
     Active Substance: KETAMINE
     Dosage: UNK
     Route: 065
  6. KETAMINE [Concomitant]
     Active Substance: KETAMINE
     Indication: Anaesthesia
     Dosage: 0.025-0.25 MG/KG/H
     Route: 065
  7. MAGNESIUM SULFATE [Concomitant]
     Active Substance: MAGNESIUM SULFATE\MAGNESIUM SULFATE HEPTAHYDRATE
     Indication: Anaesthesia
     Dosage: BOLUS 20 MG/KG, INFUSION OF 5-20 MG/KG/H
     Route: 065
  8. MAGNESIUM SULFATE [Concomitant]
     Active Substance: MAGNESIUM SULFATE\MAGNESIUM SULFATE HEPTAHYDRATE
     Indication: Adjuvant therapy
     Dosage: 4000 MILLIGRAM (BOLUS DOSE 8AM)
     Route: 065
  9. MAGNESIUM SULFATE [Concomitant]
     Active Substance: MAGNESIUM SULFATE\MAGNESIUM SULFATE HEPTAHYDRATE
     Dosage: 300 MG/ML (INFUSION: 300MG/ML MAINTENANCE)
     Route: 065
  10. MAGNESIUM SULFATE [Concomitant]
     Active Substance: MAGNESIUM SULFATE\MAGNESIUM SULFATE HEPTAHYDRATE
     Dosage: UNK
     Route: 065
  11. LIDOCAINE [Concomitant]
     Active Substance: LIDOCAINE
     Indication: General anaesthesia
     Dosage: 150 MILLIGRAM (BOLUS DOSE 8AM)
     Route: 065
  12. LIDOCAINE [Concomitant]
     Active Substance: LIDOCAINE
     Dosage: 20 MG/ML (INFUSION: 20MG/ML; MAINTENANCE )
     Route: 065
  13. LIDOCAINE [Concomitant]
     Active Substance: LIDOCAINE
     Dosage: UNK
     Route: 065
  14. ROCURONIUM BROMIDE [Concomitant]
     Active Substance: ROCURONIUM BROMIDE
     Indication: General anaesthesia
     Dosage: 50 MILLIGRAM (BOLUS DOSE 8AM)
     Route: 065
  15. ROCURONIUM BROMIDE [Concomitant]
     Active Substance: ROCURONIUM BROMIDE
     Dosage: 100 MILLIGRAM (BOLUS 11AM)
     Route: 065
  16. ROCURONIUM BROMIDE [Concomitant]
     Active Substance: ROCURONIUM BROMIDE
     Dosage: 100 MILLIGRAM (BOLUS 1PM)
     Route: 065
  17. ROCURONIUM BROMIDE [Concomitant]
     Active Substance: ROCURONIUM BROMIDE
     Dosage: UNK
     Route: 065
  18. PROPOFOL [Concomitant]
     Active Substance: PROPOFOL
     Indication: General anaesthesia
     Dosage: TARGET-CONTROLLED INFUSION
     Route: 065
  19. PROPOFOL [Concomitant]
     Active Substance: PROPOFOL
     Dosage: 20 MG/ML (INFUSION)
     Route: 065
  20. PROPOFOL [Concomitant]
     Active Substance: PROPOFOL
     Dosage: UNK
     Route: 065
  21. LIDOCAINE [Concomitant]
     Active Substance: LIDOCAINE
     Indication: Anaesthesia
     Dosage: 1-2 MG/KG/H
     Route: 065
  22. DEXAMETHASONE [Concomitant]
     Active Substance: DEXAMETHASONE
     Indication: Antiinflammatory therapy
     Dosage: 4 MILLIGRAM
     Route: 065
  23. DEXAMETHASONE [Concomitant]
     Active Substance: DEXAMETHASONE
     Indication: Prophylaxis of nausea and vomiting
  24. Dipyron [Concomitant]
     Indication: Analgesic therapy
     Dosage: 2000 MILLIGRAM (BOLUS DOSE 8AM)
     Route: 065
  25. Dipyron [Concomitant]
     Dosage: 2000 MILLIGRAM (BOLUS 5PM)
     Route: 065
  26. Dipyron [Concomitant]
     Dosage: UNK
     Route: 065
  27. ACETAMINOPHEN [Concomitant]
     Active Substance: ACETAMINOPHEN
     Indication: Analgesic therapy
     Dosage: 1000 MILLIGRAM (BOLUS DOSE 8AM)
     Route: 065
  28. ACETAMINOPHEN [Concomitant]
     Active Substance: ACETAMINOPHEN
     Dosage: UNK
     Route: 065
  29. TRANEXAMIC ACID [Concomitant]
     Active Substance: TRANEXAMIC ACID
     Indication: Post procedural haemorrhage
     Dosage: 1000 MILLIGRAM (BOLUS DOSE 9AM)
     Route: 065
  30. AMOXICILLIN\CLAVULANIC ACID [Concomitant]
     Active Substance: AMOXICILLIN\CLAVULANIC ACID
     Indication: Antibiotic prophylaxis
     Dosage: 2200 MILLIGRAM (BOLUS DOSE 9AM)
     Route: 065
  31. AMOXICILLIN\CLAVULANIC ACID [Concomitant]
     Active Substance: AMOXICILLIN\CLAVULANIC ACID
     Dosage: 1200 MILLIGRAM (BOLUS AT 11AM, 1PM, 3PM AND 5PM)
     Route: 065
  32. AMOXICILLIN\CLAVULANIC ACID [Concomitant]
     Active Substance: AMOXICILLIN\CLAVULANIC ACID
     Dosage: UNK
     Route: 065
  33. DEXTROSE [Concomitant]
     Active Substance: DEXTROSE\DEXTROSE MONOHYDRATE
     Indication: Vehicle solution use
     Dosage: UNK
     Route: 065
  34. DEXTROSE [Concomitant]
     Active Substance: DEXTROSE\DEXTROSE MONOHYDRATE
     Dosage: UNK
     Route: 065
  35. INSULIN NOS [Concomitant]
     Active Substance: INSULIN NOS
     Indication: Adjuvant therapy
     Dosage: UNK
     Route: 065
  36. INSULIN NOS [Concomitant]
     Active Substance: INSULIN NOS
     Dosage: UNK
     Route: 065
  37. POTASSIUM CHLORIDE [Concomitant]
     Active Substance: POTASSIUM CHLORIDE
     Indication: Electrolyte substitution therapy
     Dosage: UNK
     Route: 065
  38. POTASSIUM CHLORIDE [Concomitant]
     Active Substance: POTASSIUM CHLORIDE
     Dosage: UNK
     Route: 065

REACTIONS (2)
  - Polyuria [Recovered/Resolved]
  - Off label use [Unknown]
